FAERS Safety Report 18070143 (Version 3)
Quarter: 2020Q4

REPORT INFORMATION
  Report Type: Report from Study
  Country: None (occurrence: US)
  Receive Date: 20200727
  Receipt Date: 20201215
  Transmission Date: 20210113
  Serious: Yes (Other)
  Sender: FDA-Public Use
  Company Number: US-ABBVIE-20K-163-3497021-00

PATIENT
  Age: 79 Year
  Sex: Female

DRUGS (2)
  1. HUMIRA [Suspect]
     Active Substance: ADALIMUMAB
     Indication: PSORIASIS
     Route: 058
     Dates: start: 20191201, end: 202003
  2. HUMIRA [Suspect]
     Active Substance: ADALIMUMAB
     Route: 058
     Dates: start: 202005

REACTIONS (17)
  - Cataract operation complication [Unknown]
  - Frustration tolerance decreased [Unknown]
  - Back pain [Unknown]
  - Procedural pain [Unknown]
  - Drug hypersensitivity [Unknown]
  - Intentional product misuse [Unknown]
  - Fall [Unknown]
  - Psoriasis [Not Recovered/Not Resolved]
  - Urinary tract infection [Recovered/Resolved]
  - Pruritus [Not Recovered/Not Resolved]
  - Lower limb fracture [Unknown]
  - Cataract [Unknown]
  - Retinal tear [Unknown]
  - Joint swelling [Unknown]
  - Therapeutic product effect incomplete [Unknown]
  - Ankle fracture [Recovered/Resolved]
  - Peripheral swelling [Unknown]

NARRATIVE: CASE EVENT DATE: 2020
